FAERS Safety Report 19003659 (Version 2)
Quarter: 2021Q1

REPORT INFORMATION
  Report Type: Spontaneous
  Country: DE (occurrence: IT)
  Receive Date: 20210312
  Receipt Date: 20210326
  Transmission Date: 20210420
  Serious: Yes (Death)
  Sender: FDA-Public Use
  Company Number: IT-ELI_LILLY_AND_COMPANY-IT202103005754

PATIENT
  Age: 70 Year
  Sex: Male

DRUGS (3)
  1. CAPECITABINE. [Concomitant]
     Active Substance: CAPECITABINE
     Indication: POROCARCINOMA
     Dosage: 500 MG, UNK
     Route: 065
     Dates: end: 202006
  2. ERBITUX [Suspect]
     Active Substance: CETUXIMAB
     Dosage: 250 MG/M2, WEEKLY (1/W)
     Route: 065
     Dates: end: 202006
  3. ERBITUX [Suspect]
     Active Substance: CETUXIMAB
     Indication: POROCARCINOMA
     Dosage: 400 MG/M2, UNKNOWN
     Route: 065

REACTIONS (2)
  - Off label use [Unknown]
  - General physical health deterioration [Fatal]

NARRATIVE: CASE EVENT DATE: 20200608
